FAERS Safety Report 14381677 (Version 1)
Quarter: 2018Q1

REPORT INFORMATION
  Report Type: Spontaneous
  Country: US (occurrence: US)
  Receive Date: 20180111
  Receipt Date: 20180111
  Transmission Date: 20180509
  Serious: Yes (Life-Threatening, Hospitalization)
  Sender: FDA-Public Use
  Company Number: None

PATIENT
  Age: 50 Year
  Sex: Male

DRUGS (1)
  1. TRAMADOL. [Suspect]
     Active Substance: TRAMADOL
     Indication: PAIN
     Route: 048
     Dates: start: 20131213, end: 20171010

REACTIONS (5)
  - Delirium tremens [None]
  - Seizure [None]
  - Alcohol withdrawal syndrome [None]
  - Intentional product misuse [None]
  - Fatigue [None]

NARRATIVE: CASE EVENT DATE: 20171009
